FAERS Safety Report 8051236-2 (Version None)
Quarter: 2012Q1

REPORT INFORMATION
  Report Type: 
  Country: None (occurrence: None)
  Receive Date: 20120117
  Receipt Date: 20120106
  Transmission Date: 20120608
  Serious: Yes (Other)
  Sender: FDA-Public Use
  Company Number: RE-ASTRAZENECA-2012SE01973

PATIENT
  Age: 48 Year
  Sex: Female

DRUGS (5)
  1. CRESTOR [Suspect]
     Indication: DYSLIPIDAEMIA
     Route: 048
     Dates: start: 20111130, end: 20111203
  2. SECTRAL [Concomitant]
     Route: 048
  3. PREVISCAN [Concomitant]
     Route: 048
  4. VALSARTAN [Concomitant]
     Route: 048
  5. OMEPRAZOLE [Concomitant]
     Route: 048

REACTIONS (3)
  - ASTHENIA [None]
  - MUSCULAR WEAKNESS [None]
  - MALAISE [None]
